FAERS Safety Report 6965369-2 (Version None)
Quarter: 2010Q3

REPORT INFORMATION
  Report Type: 
  Country: None (occurrence: None)
  Receive Date: 20100903
  Receipt Date: 20100825
  Transmission Date: 20110219
  Serious: Yes (Hospitalization)
  Sender: FDA-Public Use
  Company Number: A0767691A

PATIENT
  Age: 54 Year
  Sex: Male

DRUGS (7)
  1. AVANDIA [Suspect]
     Dosage: 4MG PER DAY
     Route: 048
     Dates: start: 20070123
  2. CARDIZEM [Concomitant]
  3. HYDRALAZINE [Concomitant]
  4. CLONIDINE [Concomitant]
  5. LISINOPRIL [Concomitant]
  6. ZOCOR [Concomitant]
  7. ASPIRIN [Concomitant]

REACTIONS (3)
  - HYPERTENSIVE CRISIS [None]
  - MYALGIA [None]
  - MYOCARDIAL INFARCTION [None]
